FAERS Safety Report 11476876 (Version 2)
Quarter: 2015Q3

REPORT INFORMATION
  Report Type: Spontaneous
  Country: IT (occurrence: IT)
  Receive Date: 20150909
  Receipt Date: 20150922
  Transmission Date: 20151125
  Serious: Yes (Death, Other)
  Sender: FDA-Public Use
  Company Number: IT-AUROBINDO-AUR-APL-2015-08042

PATIENT
  Age: 86 Year
  Sex: Male

DRUGS (2)
  1. HALOPERIDOL. [Suspect]
     Active Substance: HALOPERIDOL
     Indication: DEPRESSION
     Route: 065
     Dates: start: 20150606, end: 20150628
  2. SERTRALINE [Suspect]
     Active Substance: SERTRALINE HYDROCHLORIDE
     Indication: DEPRESSION
     Route: 065
     Dates: start: 20150606, end: 20150628

REACTIONS (10)
  - Dermatitis bullous [Unknown]
  - Condition aggravated [Unknown]
  - Thrombocytopenia [Unknown]
  - Toxic epidermal necrolysis [Fatal]
  - Erythema [Unknown]
  - Leukopenia [Unknown]
  - Multi-organ failure [Unknown]
  - Hypoxia [Unknown]
  - Renal impairment [Unknown]
  - Rash pruritic [Unknown]

NARRATIVE: CASE EVENT DATE: 20150628
